FAERS Safety Report 17566731 (Version 1)
Quarter: 2020Q1

REPORT INFORMATION
  Report Type: Spontaneous
  Country: US (occurrence: US)
  Receive Date: 20200320
  Receipt Date: 20200320
  Transmission Date: 20200409
  Serious: Yes (Other)
  Sender: FDA-Public Use
  Company Number: None

PATIENT
  Age: 41 Year
  Sex: Male
  Weight: 62.64 kg

DRUGS (20)
  1. DOXYCYCLINE. [Concomitant]
     Active Substance: DOXYCYCLINE
  2. XELODA [Suspect]
     Active Substance: CAPECITABINE
     Indication: RECTAL CANCER
     Route: 048
     Dates: start: 20200302, end: 20200320
  3. MORPHINE SULFATE. [Concomitant]
     Active Substance: MORPHINE SULFATE
  4. MINOCYCLINE [Concomitant]
     Active Substance: MINOCYCLINE HYDROCHLORIDE
  5. TAMSULOSIN [Concomitant]
     Active Substance: TAMSULOSIN
  6. FAMOTIDINE. [Concomitant]
     Active Substance: FAMOTIDINE
  7. ENOXAPARIN [Concomitant]
     Active Substance: ENOXAPARIN
  8. COLACE [Concomitant]
     Active Substance: DOCUSATE SODIUM
  9. OXYCODONE [Concomitant]
     Active Substance: OXYCODONE
  10. GABAPENTIN. [Concomitant]
     Active Substance: GABAPENTIN
  11. ONDANSETRON [Concomitant]
     Active Substance: ONDANSETRON
  12. SILVER SULFADIZINE [Concomitant]
     Active Substance: SILVER SULFADIAZINE
  13. DEXAMETHASONE. [Concomitant]
     Active Substance: DEXAMETHASONE
  14. CYCLOBENZAPRINE. [Concomitant]
     Active Substance: CYCLOBENZAPRINE
  15. ACETAMINOPHEN. [Concomitant]
     Active Substance: ACETAMINOPHEN
  16. LORAZEPAM. [Concomitant]
     Active Substance: LORAZEPAM
  17. DIPHENHYDRAMINE. [Concomitant]
     Active Substance: DIPHENHYDRAMINE
  18. TRAZODONE [Concomitant]
     Active Substance: TRAZODONE HYDROCHLORIDE
  19. FENTANYL. [Concomitant]
     Active Substance: FENTANYL
  20. HYDROCORTIOSONE [Concomitant]

REACTIONS (1)
  - Hypoaesthesia [None]

NARRATIVE: CASE EVENT DATE: 20200320
